FAERS Safety Report 6149606-2 (Version None)
Quarter: 2009Q2

REPORT INFORMATION
  Report Type: 
  Country: None (occurrence: None)
  Receive Date: 20090409
  Receipt Date: 20090401
  Transmission Date: 20091009
  Serious: Yes (Hospitalization)
  Sender: FDA-Public Use
  Company Number: CA-WYE-G02975609

PATIENT
  Sex: Male
  Weight: 88 kg

DRUGS (22)
  1. RAPAMUNE [Suspect]
     Indication: PROPHYLAXIS AGAINST TRANSPLANT REJECTION
     Route: 048
     Dates: start: 20081117, end: 20090123
  2. RAPAMUNE [Suspect]
     Route: 048
     Dates: start: 20090205
  3. PREDNISONE [Suspect]
     Indication: PROPHYLAXIS AGAINST TRANSPLANT REJECTION
     Route: 048
     Dates: start: 20080718
  4. PREDNISONE [Suspect]
     Route: 048
     Dates: start: 20090120
  5. ATORVASTATIN [Concomitant]
     Indication: DYSLIPIDAEMIA
     Route: 048
     Dates: start: 20071117
  6. PANTOPRAZOLE [Concomitant]
     Indication: PROPHYLAXIS
     Route: 048
     Dates: start: 20070101
  7. WARFARIN SODIUM [Concomitant]
     Indication: PROPHYLAXIS
     Route: 048
     Dates: start: 20080725, end: 20090120
  8. OS-CAL [Concomitant]
     Indication: SUPPLEMENTATION THERAPY
     Route: 048
     Dates: start: 20080606
  9. ONE-ALPHA [Concomitant]
     Indication: SUPPLEMENTATION THERAPY
     Dosage: 0.25 UG/L
     Route: 048
     Dates: start: 20080606
  10. SEPTRA DS [Concomitant]
     Indication: PROPHYLAXIS
     Route: 048
     Dates: start: 20080524
  11. VALCYTE [Concomitant]
     Indication: PROPHYLAXIS
     Route: 048
     Dates: start: 20080528
  12. MONOCOR [Concomitant]
     Indication: HYPERTENSION
     Route: 048
     Dates: start: 20071117, end: 20081117
  13. MONOCOR [Concomitant]
     Route: 048
     Dates: start: 20081118
  14. HUMALOG [Concomitant]
     Indication: DIABETES MELLITUS
     Dosage: 62 UNIT EVERY
     Route: 058
     Dates: start: 20080801
  15. HUMALOG [Concomitant]
     Dosage: 48 UNIT EVERY 1 DAY
     Route: 058
     Dates: start: 20080801
  16. LANTUS [Concomitant]
     Indication: DIABETES MELLITUS
     Dosage: 32 UNIT EVERY
     Route: 058
     Dates: start: 20080801
  17. ADVAIR HFA [Concomitant]
     Indication: ASTHMA
     Dosage: 4 INHALANT EVERY
     Route: 055
     Dates: start: 20071117
  18. VENTOLIN [Concomitant]
     Indication: ASTHMA
     Dosage: 1 INHALANT EVERY
     Route: 055
     Dates: start: 20071117
  19. TACROLIMUS [Concomitant]
     Indication: PROPHYLAXIS AGAINST TRANSPLANT REJECTION
     Route: 048
     Dates: start: 20090123, end: 20090204
  20. SIMULECT [Concomitant]
     Indication: PROPHYLAXIS AGAINST TRANSPLANT REJECTION
     Route: 042
     Dates: start: 20090120, end: 20090120
  21. NORVASC [Concomitant]
     Indication: HYPERTENSION
     Dosage: 2.5 MG AS NEEDED
     Route: 048
     Dates: start: 20081024
  22. CELLCEPT [Suspect]
     Indication: PROPHYLAXIS AGAINST TRANSPLANT REJECTION
     Route: 048
     Dates: start: 20081117, end: 20090120

REACTIONS (3)
  - COMPLICATIONS OF TRANSPLANTED KIDNEY [None]
  - LEUKOPENIA [None]
  - NEUTROPENIA [None]
